FAERS Safety Report 7961229-9 (Version None)
Quarter: 2011Q4

REPORT INFORMATION
  Report Type: 
  Country: None (occurrence: None)
  Receive Date: 20111207
  Receipt Date: 20111201
  Transmission Date: 20120403
  Serious: Yes (Death)
  Sender: FDA-Public Use
  Company Number: JP-ELI_LILLY_AND_COMPANY-JP201111005177

PATIENT
  Age: 84 Year
  Sex: Female

DRUGS (2)
  1. CORTICOSTEROIDS [Concomitant]
     Indication: INTERSTITIAL LUNG DISEASE
  2. FORTEO [Suspect]
     Indication: SPINAL FRACTURE
     Dosage: UNK
     Route: 058

REACTIONS (1)
  - INTERSTITIAL LUNG DISEASE [None]
